FAERS Safety Report 5087400-4 (Version None)
Quarter: 2006Q3

REPORT INFORMATION
  Report Type: 
  Country: None (occurrence: None)
  Receive Date: 20060822
  Receipt Date: 20060822
  Transmission Date: 20061208
  Serious: Yes (Hospitalization)
  Sender: FDA-Public Use
  Company Number: None

PATIENT
  Age: 64 Year
  Sex: Male
  Weight: 89.8122 kg

DRUGS (12)
  1. IBUPROFEN [Suspect]
     Indication: BACK PAIN
     Dosage: ONE TAB PO TID  LAST 8 YEARS
     Route: 048
  2. FLUNISOLIDE [Concomitant]
  3. ALBUTEROL [Concomitant]
  4. CITALOPRAM [Concomitant]
  5. CYANOCOBALAMIN [Concomitant]
  6. DOXAZOSIN MESYLATE [Concomitant]
  7. FOSINOPRIL SODIUM [Concomitant]
  8. HYDROCHLOROTHIAZIDE [Concomitant]
  9. LORAZEPAM [Concomitant]
  10. SIMVASTATIN [Concomitant]
  11. TRAMADOL HCL [Concomitant]
  12. VARDENAFIL [Concomitant]

REACTIONS (6)
  - DUODENITIS [None]
  - GASTROINTESTINAL EROSION [None]
  - HIATUS HERNIA [None]
  - MELAENA [None]
  - RETCHING [None]
  - SMALL INTESTINAL HAEMORRHAGE [None]
